FAERS Safety Report 23221507 (Version 2)
Quarter: 2023Q4

REPORT INFORMATION
  Report Type: Spontaneous
  Country: JP (occurrence: None)
  Receive Date: 20231123
  Receipt Date: 20231222
  Transmission Date: 20240109
  Serious: Yes (Life-Threatening, Hospitalization, Other)
  Sender: FDA-Public Use
  Company Number: 2023A261489

PATIENT
  Age: 40 Year
  Sex: Male
  Weight: 67 kg

DRUGS (3)
  1. DAPAGLIFLOZIN [Suspect]
     Active Substance: DAPAGLIFLOZIN
     Indication: Type 1 diabetes mellitus
     Route: 048
     Dates: start: 20230620, end: 20230922
  2. INSULIN NOS [Concomitant]
     Active Substance: INSULIN NOS
     Dosage: BASAL INSULIN: 0.7 U/HR, BOLUS INSULIN: 6 - 10 U
  3. VOGLIBOSE [Concomitant]
     Active Substance: VOGLIBOSE
     Indication: Type 1 diabetes mellitus
     Dosage: NUMBER OF SEPARATE DOSAGES UNKNOWN
     Route: 048
     Dates: start: 20230615, end: 20230922

REACTIONS (3)
  - Spinal compression fracture [Unknown]
  - Diabetic ketoacidosis [Recovered/Resolved]
  - Ketoacidosis [Recovered/Resolved]

NARRATIVE: CASE EVENT DATE: 20230919
